FAERS Safety Report 18381161 (Version 4)
Quarter: 2020Q4

REPORT INFORMATION
  Report Type: Spontaneous
  Country: IT (occurrence: IT)
  Receive Date: 20201014
  Receipt Date: 20201125
  Transmission Date: 20210114
  Serious: Yes (Hospitalization)
  Sender: FDA-Public Use
  Company Number: IT-B.I. PHARMACEUTICALS,INC./RIDGEFIELD-2020-BI-053391

PATIENT
  Age: 73 Year
  Sex: Male
  Weight: 81 kg

DRUGS (1)
  1. DABIGATRAN ETEXILATE [Suspect]
     Active Substance: DABIGATRAN ETEXILATE
     Indication: ATRIAL FIBRILLATION
     Route: 048
     Dates: start: 20180906, end: 20200701

REACTIONS (2)
  - Ecchymosis [Recovered/Resolved with Sequelae]
  - Factor VIII deficiency [Recovered/Resolved with Sequelae]

NARRATIVE: CASE EVENT DATE: 20200701
